FAERS Safety Report 18869362 (Version 3)
Quarter: 2021Q1

REPORT INFORMATION
  Report Type: Spontaneous
  Country: ES (occurrence: ES)
  Receive Date: 20210210
  Receipt Date: 20210311
  Transmission Date: 20210420
  Serious: Yes (Other)
  Sender: FDA-Public Use
  Company Number: ES-JNJFOC-20210210224

PATIENT
  Age: 47 Year
  Sex: Female

DRUGS (1)
  1. STELARA [Suspect]
     Active Substance: USTEKINUMAB
     Indication: PSORIASIS
     Route: 058
     Dates: start: 20161005, end: 20190919

REACTIONS (2)
  - Meningioma [Unknown]
  - Brain injury [Recovered/Resolved]

NARRATIVE: CASE EVENT DATE: 202005
